FAERS Safety Report 26178067 (Version 1)
Quarter: 2025Q4

REPORT INFORMATION
  Report Type: Spontaneous
  Country: GB (occurrence: GB)
  Receive Date: 20251219
  Receipt Date: 20251219
  Transmission Date: 20260117
  Serious: Yes (Other)
  Sender: CELLTRION
  Company Number: None

PATIENT

DRUGS (1)
  1. INFLIXIMAB [Suspect]
     Active Substance: INFLIXIMAB
     Dosage: 10 ML
     Route: 042

REACTIONS (4)
  - Blood pressure systolic decreased [Unknown]
  - Heart rate decreased [Unknown]
  - Throat tightness [Unknown]
  - Feeling hot [Unknown]
